FAERS Safety Report 5886649-8 (Version None)
Quarter: 2008Q3

REPORT INFORMATION
  Report Type: 
  Country: None (occurrence: None)
  Receive Date: 20080917
  Receipt Date: 20080909
  Transmission Date: 20090109
  Serious: Yes (Other)
  Sender: FDA-Public Use
  Company Number: PHHY2008JP21235

PATIENT

DRUGS (5)
  1. TEGRETOL [Suspect]
  2. ZADITEN [Suspect]
  3. MYSTAN AZWELL [Concomitant]
  4. DEPAKENE [Concomitant]
  5. GASMOTIN [Concomitant]

REACTIONS (1)
  - POST PROCEDURAL COMPLICATION [None]
